FAERS Safety Report 5682700-9 (Version None)
Quarter: 2008Q1

REPORT INFORMATION
  Report Type: 
  Country: None (occurrence: None)
  Receive Date: 20080326
  Receipt Date: 20080326
  Transmission Date: 20080703
  Serious: No
  Sender: FDA-Public Use
  Company Number: None

PATIENT
  Age: 41 Year
  Sex: Male
  Weight: 150 kg

DRUGS (21)
  1. TRIMETHOPRIM + SULFAMETHOXAZOLE [Suspect]
     Indication: INFECTION
     Dosage: 320/1,600 Q8H PO
     Route: 048
     Dates: start: 20080106, end: 20080117
  2. TRIMETHOPRIM + SULFAMETHOXAZOLE [Suspect]
     Indication: ULCER
     Dosage: 320/1,600 Q8H PO
     Route: 048
     Dates: start: 20080106, end: 20080117
  3. TRIMETHOPRIM + SULFAMETHOXAZOLE [Suspect]
     Indication: WOUND
     Dosage: 320/1,600 Q8H PO
     Route: 048
     Dates: start: 20080106, end: 20080117
  4. HYDROMORPHONE HCL [Concomitant]
  5. CEFEPIME [Concomitant]
  6. LASIX [Concomitant]
  7. KETOROLAC [Concomitant]
  8. IBUPROFEN [Concomitant]
  9. WARFARIN SODIUM [Concomitant]
  10. TEMAZEPAM [Concomitant]
  11. VANCOMYCIN [Concomitant]
  12. ATIVAN [Concomitant]
  13. FLUCONAZOLE [Concomitant]
  14. PROMETHAZINE [Concomitant]
  15. LINEZOLID [Concomitant]
  16. MIRTAZAPINE [Concomitant]
  17. ENOXAPARIN SODIUM [Concomitant]
  18. COSYNTROPIN [Concomitant]
  19. HEPARIN [Concomitant]
  20. GABAPENTIN [Concomitant]
  21. SIMVASTATIN [Concomitant]

REACTIONS (1)
  - BLOOD POTASSIUM INCREASED [None]
